FAERS Safety Report 21345871 (Version 3)
Quarter: 2022Q4

REPORT INFORMATION
  Report Type: Spontaneous
  Country: DE (occurrence: DE)
  Receive Date: 20220916
  Receipt Date: 20221004
  Transmission Date: 20230113
  Serious: Yes (Other)
  Sender: FDA-Public Use
  Company Number: DE-SA-SAC20220125000779

PATIENT
  Age: 58 Year
  Sex: Female

DRUGS (13)
  1. DEXAMETHASONE [Suspect]
     Active Substance: DEXAMETHASONE
     Indication: Plasma cell myeloma refractory
     Dosage: TOTAL DOSE: 20 MG
     Route: 065
     Dates: start: 20210610, end: 20210618
  2. DEXAMETHASONE [Suspect]
     Active Substance: DEXAMETHASONE
     Dosage: UNK
     Route: 065
     Dates: start: 20210707
  3. CARFILZOMIB [Suspect]
     Active Substance: CARFILZOMIB
     Indication: Plasma cell myeloma refractory
     Dosage: TOTAL DOSE: 37 MG
     Route: 065
     Dates: start: 20210610, end: 20210611
  4. CARFILZOMIB [Suspect]
     Active Substance: CARFILZOMIB
     Dosage: TOTAL DOSE: 37 MG
     Route: 065
     Dates: start: 20210617, end: 20210618
  5. CARFILZOMIB [Suspect]
     Active Substance: CARFILZOMIB
     Dosage: UNK
     Route: 065
     Dates: start: 20210707
  6. CARFILZOMIB [Suspect]
     Active Substance: CARFILZOMIB
     Dosage: 105 MG
     Route: 065
     Dates: start: 20210617, end: 20210618
  7. POMALIDOMIDE [Suspect]
     Active Substance: POMALIDOMIDE
     Indication: Plasma cell myeloma refractory
     Dosage: UNK
     Route: 065
  8. ISATUXIMAB [Suspect]
     Active Substance: ISATUXIMAB
     Indication: Plasma cell myeloma refractory
     Dosage: TOTAL DOSE: 740 MG
     Route: 065
     Dates: start: 20210610, end: 20210624
  9. ISATUXIMAB [Suspect]
     Active Substance: ISATUXIMAB
     Dosage: UNK
     Route: 065
     Dates: start: 20210707
  10. MONTELUKAST [Concomitant]
     Active Substance: MONTELUKAST SODIUM
     Indication: Prophylaxis
     Dates: start: 20210610, end: 20220726
  11. ISATUXIMAB [Concomitant]
     Active Substance: ISATUXIMAB
     Indication: Plasma cell myeloma
     Route: 065
  12. ZOMETA [Concomitant]
     Active Substance: ZOLEDRONIC ACID
     Indication: Hypercalcaemia
     Dosage: UNK, EVERY 4 WEEKS
     Dates: start: 20161011
  13. CLEMASTINE [Concomitant]
     Active Substance: CLEMASTINE
     Indication: Nausea
     Dates: start: 20210610, end: 20220726

REACTIONS (7)
  - Peripheral sensory neuropathy [Not Recovered/Not Resolved]
  - Thrombocytopenia [Recovered/Resolved]
  - Hypersensitivity [Recovered/Resolved]
  - Fatigue [Unknown]
  - Headache [Recovered/Resolved]
  - Oedema peripheral [Recovered/Resolved]
  - Infusion related reaction [Recovered/Resolved]

NARRATIVE: CASE EVENT DATE: 20210610
